FAERS Safety Report 9664713 (Version 3)
Quarter: 2013Q4

REPORT INFORMATION
  Report Type: Spontaneous
  Country: US (occurrence: US)
  Receive Date: 20131101
  Receipt Date: 20131230
  Transmission Date: 20140711
  Serious: Yes (Other)
  Sender: FDA-Public Use
  Company Number: US-AMGEN-USASP2013077159

PATIENT
  Age: 57 Year
  Sex: Female

DRUGS (26)
  1. ENBREL [Suspect]
     Indication: RHEUMATOID ARTHRITIS
     Dosage: 50 MG, QWK
     Route: 058
     Dates: start: 201309, end: 20131030
  2. HYDROXYCHLOROQUINE [Concomitant]
     Indication: RHEUMATOID ARTHRITIS
     Dosage: 200 MG, BID
     Route: 048
  3. CYMBALTA [Concomitant]
     Dosage: 30 MG, UNK
  4. LIPITOR [Concomitant]
     Dosage: 10 MG, UNK
  5. FENTANYL [Concomitant]
     Dosage: 12 MCG/HR
  6. METHOTREXATE [Concomitant]
     Dosage: 2.5 MG, UNK
  7. SYNTHROID [Concomitant]
     Dosage: 137 MUG, UNK
  8. SULFASALAZIN [Concomitant]
     Dosage: 500 MG, UNK
  9. PLAQUENIL                          /00072602/ [Concomitant]
     Dosage: 200 MG, UNK
  10. HYDROCHLOROTH [Concomitant]
     Dosage: 25 MG, UNK
  11. FOLIC ACID [Concomitant]
     Dosage: UNK
  12. PROTONIX [Concomitant]
     Dosage: 20 MG, UNK
  13. GABAPENTIN [Concomitant]
     Dosage: 300 MG, UNK
  14. PREDNISONE [Concomitant]
     Dosage: 1 MG, UNK
  15. FOSAMAX [Concomitant]
     Dosage: 35 MG, UNK
  16. DIOVAN [Concomitant]
     Dosage: 320 MG, UNK
  17. FLEXERIL                           /00428402/ [Concomitant]
     Dosage: 10 MG, UNK
  18. POTASSIUM [Concomitant]
     Dosage: 75 MG, UNK
  19. MELATONIN [Concomitant]
     Dosage: 5 MG, UNK
  20. TOPAMAX [Concomitant]
     Dosage: 200 MG, UNK
  21. FLONASE                            /00908302/ [Concomitant]
     Dosage: UNK, 0.05%
  22. COQ-10 [Concomitant]
     Dosage: 100 MG, UNK
  23. GLUCOSAMINE + CHONDROITIN          /01430901/ [Concomitant]
     Dosage: UNK, 500-250
  24. FISH OIL [Concomitant]
     Dosage: UNK
  25. CALCIUM + VITAMIN D                /01483701/ [Concomitant]
     Dosage: UNK
  26. FIORICET WITH CODEINE [Concomitant]
     Dosage: UNK

REACTIONS (3)
  - Vision blurred [Recovered/Resolved]
  - Papilloedema [Not Recovered/Not Resolved]
  - Optic neuritis [Recovered/Resolved]
